FAERS Safety Report 9475613 (Version 6)
Quarter: 2018Q3

REPORT INFORMATION
  Report Type: Report from Study
  Country: JP (occurrence: JP)
  Receive Date: 20130826
  Receipt Date: 20180827
  Transmission Date: 20181010
  Serious: Yes (Life-Threatening, Hospitalization)
  Sender: FDA-Public Use
  Company Number: PHHY2013JP091206

PATIENT
  Age: 33 Year
  Sex: Male
  Weight: 56 kg

DRUGS (18)
  1. SOL?MELCORT [Suspect]
     Active Substance: METHYLPREDNISOLONE SODIUM SUCCINATE
     Dosage: 1 G, QD
     Route: 065
     Dates: start: 20130819
  2. WARKMIN [Concomitant]
     Active Substance: ALFACALCIDOL
     Indication: PROPHYLAXIS
     Dosage: 0.5 UG, UNK
     Route: 048
     Dates: end: 20130812
  3. GILENYA [Suspect]
     Active Substance: FINGOLIMOD HYDROCHLORIDE
     Indication: MULTIPLE SCLEROSIS
     Dosage: 0.5 MG, QD
     Route: 048
     Dates: start: 20111214, end: 20130812
  4. SOL?MELCORT [Suspect]
     Active Substance: METHYLPREDNISOLONE SODIUM SUCCINATE
     Dosage: 1 G, QD
     Route: 065
     Dates: start: 20130503, end: 20130505
  5. LENDORMIN [Concomitant]
     Active Substance: BROTIZOLAM
     Indication: INSOMNIA
     Dosage: 0.25 MG, UNK
     Route: 048
     Dates: end: 20130411
  6. THREENOFEN [Concomitant]
     Active Substance: LOXOPROFEN SODIUM
     Indication: MULTIPLE SCLEROSIS
     Dosage: 60 MG, UNK
     Route: 048
     Dates: end: 20130124
  7. AVONEX [Concomitant]
     Active Substance: INTERFERON BETA-1A
     Indication: MULTIPLE SCLEROSIS
     Dosage: 30 UG, QW
     Route: 030
     Dates: start: 200808, end: 200908
  8. LIORESAL [Concomitant]
     Active Substance: BACLOFEN
     Dosage: 30 MG, UNK
     Route: 048
     Dates: end: 20130812
  9. SOL?MELCORT [Suspect]
     Active Substance: METHYLPREDNISOLONE SODIUM SUCCINATE
     Indication: MULTIPLE SCLEROSIS
     Dosage: 1 G, QD
     Route: 065
     Dates: start: 20110316, end: 20110318
  10. BETAFERON [Concomitant]
     Active Substance: INTERFERON BETA-1B
     Indication: MULTIPLE SCLEROSIS
     Dosage: 8000000 IU, QOD
     Route: 058
     Dates: start: 200908, end: 201109
  11. GASTER [Concomitant]
     Active Substance: FAMOTIDINE
     Indication: PROPHYLAXIS
     Dosage: 20 MG, UNK
     Route: 048
  12. RIZE [Concomitant]
     Active Substance: CLOTIAZEPAM
     Indication: INSOMNIA
     Dosage: 30 MG, UNK
     Route: 048
  13. SOL?MELCORT [Suspect]
     Active Substance: METHYLPREDNISOLONE SODIUM SUCCINATE
     Dosage: 1 G, QD
     Route: 065
     Dates: start: 20110901, end: 20110903
  14. SOL?MELCORT [Suspect]
     Active Substance: METHYLPREDNISOLONE SODIUM SUCCINATE
     Dosage: 1 G, QD
     Route: 065
     Dates: start: 20130808, end: 20130810
  15. GASPORT [Concomitant]
     Active Substance: FAMOTIDINE
     Indication: PROPHYLAXIS
     Dosage: 20 MG, UNK
     Route: 048
     Dates: end: 20130812
  16. MYSLEE [Concomitant]
     Active Substance: ZOLPIDEM TARTRATE
     Indication: INSOMNIA
     Dosage: 5 MG, UNK
     Route: 048
     Dates: end: 20121227
  17. SOL?MELCORT [Suspect]
     Active Substance: METHYLPREDNISOLONE SODIUM SUCCINATE
     Dosage: 1 G, QD
     Route: 065
     Dates: start: 20111107, end: 20111109
  18. LIORESAL [Concomitant]
     Active Substance: BACLOFEN
     Indication: MULTIPLE SCLEROSIS
     Dosage: 15 MG, UNK
     Route: 048

REACTIONS (14)
  - Urine output decreased [Unknown]
  - Depressed level of consciousness [Unknown]
  - Nausea [Unknown]
  - Platelet count decreased [Unknown]
  - Seizure [Recovered/Resolved]
  - Haemolytic uraemic syndrome [Recovered/Resolved]
  - Abdominal pain [Not Recovered/Not Resolved]
  - Haematochezia [Recovered/Resolved]
  - Blood bilirubin increased [Unknown]
  - Pyrexia [Recovered/Resolved]
  - Enterocolitis haemorrhagic [Recovered/Resolved]
  - Diarrhoea [Recovered/Resolved]
  - Blood urine present [Unknown]
  - Renal impairment [Unknown]

NARRATIVE: CASE EVENT DATE: 20130811
